FAERS Safety Report 7741143-4 (Version None)
Quarter: 2011Q3

REPORT INFORMATION
  Report Type: 
  Country: None (occurrence: None)
  Receive Date: 20110909
  Receipt Date: 20110829
  Transmission Date: 20111222
  Serious: No
  Sender: FDA-Public Use
  Company Number: US-B.I. PHARMACEUTICALS,INC./RIDGEFIELD-2011-BP-21034BP

PATIENT
  Age: 68 Year
  Sex: Male

DRUGS (10)
  1. METOPROLOL TARTRATE [Concomitant]
     Indication: HYPERTENSION
     Route: 048
  2. HYDRALAZINE HCL [Concomitant]
     Indication: HYPERTENSION
     Route: 048
  3. PRADAXA [Suspect]
     Indication: ATRIAL FIBRILLATION
     Dosage: 300 MG
     Route: 048
  4. HYDROCHLOROTHIAZIDE [Concomitant]
     Indication: HYPERTENSION
     Route: 048
  5. TRAMADOL HYDROCHLORIDE [Concomitant]
     Indication: OSTEOARTHRITIS
     Route: 048
  6. OXCARBAZEPINE [Concomitant]
     Indication: BIPOLAR DISORDER
     Route: 048
  7. LIPITOR [Concomitant]
     Indication: BLOOD CHOLESTEROL INCREASED
     Route: 048
  8. LISINOPRIL [Concomitant]
     Indication: HYPERTENSION
     Route: 048
  9. RYTHMOL [Concomitant]
     Indication: CARDIAC DISORDER
     Route: 048
  10. LORAZEPAM [Concomitant]
     Indication: BIPOLAR DISORDER
     Route: 048

REACTIONS (2)
  - LACERATION [None]
  - COAGULATION TIME SHORTENED [None]
